FAERS Safety Report 16895566 (Version 1)
Quarter: 2019Q4

REPORT INFORMATION
  Report Type: Spontaneous
  Country: VN (occurrence: VN)
  Receive Date: 20191008
  Receipt Date: 20191008
  Transmission Date: 20200122
  Serious: Yes (Life-Threatening)
  Sender: FDA-Public Use
  Company Number: VN-PFIZER INC-2019432082

PATIENT
  Age: 5 Week
  Sex: Female

DRUGS (9)
  1. DOBUTAMIN [Concomitant]
     Active Substance: DOBUTAMINE HYDROCHLORIDE
     Dosage: UNK
  2. DIMEDROL [Concomitant]
     Active Substance: DIPHENHYDRAMINE
     Dosage: UNK
  3. MERONEM [Suspect]
     Active Substance: MEROPENEM
     Indication: PNEUMONIA
     Dosage: 80 MG, 3X/DAY
     Route: 042
     Dates: start: 20190920, end: 20190921
  4. NACL [Concomitant]
     Active Substance: SODIUM CHLORIDE
     Dosage: UNK
     Dates: start: 20190918, end: 20190921
  5. NACL [Concomitant]
     Active Substance: SODIUM CHLORIDE
     Dosage: UNK
  6. GLUCOSE [Concomitant]
     Active Substance: DEXTROSE
     Dosage: UNK
  7. ADRENALIN (EPINEPHRINE) [Concomitant]
     Active Substance: EPINEPHRINE
     Dosage: UNK
  8. FUROSEMID [Concomitant]
     Active Substance: FUROSEMIDE
     Dosage: UNK
  9. MIDANIUM [Concomitant]
     Active Substance: MIDAZOLAM HYDROCHLORIDE
     Dosage: UNK

REACTIONS (5)
  - Product administered to patient of inappropriate age [Unknown]
  - Rash [Recovering/Resolving]
  - Off label use [Unknown]
  - Agitation [Recovering/Resolving]
  - Skin discolouration [Recovering/Resolving]

NARRATIVE: CASE EVENT DATE: 20190921
